FAERS Safety Report 7776495-2 (Version None)
Quarter: 2011Q3

REPORT INFORMATION
  Report Type: 
  Country: None (occurrence: None)
  Receive Date: 20110922
  Receipt Date: 20110922
  Transmission Date: 20111222
  Serious: Yes (Hospitalization, Disabling, Congenital Anomaly)
  Sender: FDA-Public Use
  Company Number: None

PATIENT
  Sex: Male

DRUGS (1)
  1. LEXAPRO [Suspect]
     Dosage: 10MG 1 PO DAILY
     Route: 048
     Dates: start: 20040101, end: 20090101

REACTIONS (4)
  - CRANIOSYNOSTOSIS [None]
  - DILATATION VENTRICULAR [None]
  - MATERNAL DRUGS AFFECTING FOETUS [None]
  - BICUSPID AORTIC VALVE [None]
